FAERS Safety Report 9260597 (Version 2)
Quarter: 2013Q2

REPORT INFORMATION
  Report Type: Spontaneous
  Country: IT (occurrence: IT)
  Receive Date: 20130429
  Receipt Date: 20130619
  Transmission Date: 20140414
  Serious: Yes (Hospitalization)
  Sender: FDA-Public Use
  Company Number: IT-ABBOTT-13X-083-1079403-00

PATIENT
  Age: 1 Year
  Sex: Male
  Weight: 8 kg

DRUGS (1)
  1. MACLADIN [Suspect]
     Indication: BRONCHITIS
     Dosage: FORM STRENGHT: 250MG/5ML
     Route: 048
     Dates: start: 20130220, end: 20130224

REACTIONS (2)
  - Cerebellar ataxia [Recovered/Resolved]
  - Tremor [Recovered/Resolved]
